FAERS Safety Report 8108088-1 (Version None)
Quarter: 2012Q1

REPORT INFORMATION
  Report Type: 
  Country: None (occurrence: None)
  Receive Date: 20120202
  Receipt Date: 20120126
  Transmission Date: 20120608
  Serious: Yes (Other)
  Sender: FDA-Public Use
  Company Number: US-PFIZER INC-2012009365

PATIENT
  Sex: Female

DRUGS (1)
  1. XALKORI [Suspect]
     Indication: LUNG NEOPLASM MALIGNANT
     Dosage: 250 MG, 2X/DAY
     Dates: start: 20120107

REACTIONS (7)
  - DRY MOUTH [None]
  - CONSTIPATION [None]
  - STOMATITIS [None]
  - OESOPHAGEAL PAIN [None]
  - OROPHARYNGEAL BLISTERING [None]
  - MALAISE [None]
  - INFLUENZA LIKE ILLNESS [None]
